FAERS Safety Report 8760933 (Version 3)
Quarter: 2014Q3

REPORT INFORMATION
  Report Type: Report from Study
  Country: AU (occurrence: AU)
  Receive Date: 20120830
  Receipt Date: 20140813
  Transmission Date: 20150326
  Serious: Yes (Hospitalization, Other)
  Sender: FDA-Public Use
  Company Number: PHHY2012AU074796

PATIENT
  Age: 40 Year
  Sex: Male

DRUGS (7)
  1. PANTOPRAZOLE [Concomitant]
     Active Substance: PANTOPRAZOLE SODIUM
     Indication: GASTROOESOPHAGEAL REFLUX DISEASE
     Dosage: 40 MG PER DAY, IN THE MORNING
     Route: 048
  2. BENZOTROPINE [Concomitant]
     Active Substance: BENZTROPINE
     Dosage: 1 MG, BID
     Route: 048
  3. METFORMIN [Concomitant]
     Active Substance: METFORMIN HYDROCHLORIDE
     Indication: DIABETES MELLITUS
     Dosage: 500 MG, BID
     Route: 048
  4. CLOZARIL [Suspect]
     Active Substance: CLOZAPINE
     Dosage: 350 MG, DAILY
     Route: 048
  5. VENLAFAXINE [Concomitant]
     Active Substance: VENLAFAXINE HYDROCHLORIDE
     Indication: DEPRESSION
     Dosage: 375 MG, IN THE MORNING
     Route: 048
  6. CLOZARIL [Suspect]
     Active Substance: CLOZAPINE
     Indication: SCHIZOPHRENIA
     Dosage: 100 MG MANE, 300 MG NOCTE
     Route: 048
     Dates: start: 20110714
  7. VENLAFAXINE [Concomitant]
     Active Substance: VENLAFAXINE HYDROCHLORIDE
     Dosage: 225 MG PER DAY
     Route: 048

REACTIONS (8)
  - Acute respiratory failure [Recovered/Resolved]
  - Pneumonia [Unknown]
  - C-reactive protein increased [Unknown]
  - Sleep apnoea syndrome [Unknown]
  - Respiratory tract infection [Recovered/Resolved]
  - Malaise [Unknown]
  - Respiratory distress [Recovered/Resolved]
  - Antipsychotic drug level below therapeutic [Unknown]

NARRATIVE: CASE EVENT DATE: 20120828
